FAERS Safety Report 4262188-5 (Version None)
Quarter: 2004Q1

REPORT INFORMATION
  Report Type: 
  Country: None (occurrence: None)
  Receive Date: 20040102
  Receipt Date: 20031215
  Transmission Date: 20041129
  Serious: Yes (Hospitalization)
  Sender: FDA-Public Use
  Company Number: WAES 0312USA01796

PATIENT
  Age: 64 Year
  Sex: Male

DRUGS (6)
  1. EFFERALGAN [Suspect]
     Route: 048
     Dates: start: 19990823, end: 19990910
  2. MODURETIC 5-50 [Suspect]
     Route: 048
     Dates: start: 19990716, end: 19990910
  3. AGRAM [Suspect]
     Route: 048
     Dates: start: 19990830, end: 19990901
  4. AUGMENTIN '125' [Suspect]
     Route: 048
     Dates: start: 19990901, end: 19990910
  5. OFLOCET [Suspect]
     Indication: PROSTATITIS
     Route: 048
     Dates: start: 19990716, end: 19990816
  6. OFLOCET [Suspect]
     Route: 048
     Dates: start: 19990903, end: 19990910

REACTIONS (2)
  - AGRANULOCYTOSIS [None]
  - PYREXIA [None]
